FAERS Safety Report 21803577 (Version 1)
Quarter: 2023Q1

REPORT INFORMATION
  Report Type: Spontaneous
  Country: US (occurrence: US)
  Receive Date: 20230101
  Receipt Date: 20230101
  Transmission Date: 20230417
  Serious: Yes (Hospitalization, Other)
  Sender: FDA-Public Use
  Company Number: US-MSNLABS-2022MSNLIT01624

PATIENT

DRUGS (24)
  1. PREGABALIN [Suspect]
     Active Substance: PREGABALIN
     Indication: Generalised tonic-clonic seizure
     Route: 065
  2. CLOBAZAM [Suspect]
     Active Substance: CLOBAZAM
     Indication: Generalised tonic-clonic seizure
     Dosage: PER DAY
     Route: 065
  3. CLOBAZAM [Suspect]
     Active Substance: CLOBAZAM
     Dosage: PER DAY
     Route: 065
  4. CLOBAZAM [Suspect]
     Active Substance: CLOBAZAM
     Dosage: PER DAY
     Route: 065
  5. LORAZEPAM [Suspect]
     Active Substance: LORAZEPAM
     Indication: Generalised tonic-clonic seizure
     Route: 065
  6. LEVETIRACETAM [Suspect]
     Active Substance: LEVETIRACETAM
     Indication: Generalised tonic-clonic seizure
     Route: 065
  7. LEVETIRACETAM [Suspect]
     Active Substance: LEVETIRACETAM
     Route: 065
  8. LEVETIRACETAM [Suspect]
     Active Substance: LEVETIRACETAM
     Route: 065
  9. PHENYTOIN [Suspect]
     Active Substance: PHENYTOIN
     Indication: Generalised tonic-clonic seizure
     Route: 065
  10. PHENYTOIN [Suspect]
     Active Substance: PHENYTOIN
     Route: 065
  11. PHENYTOIN [Suspect]
     Active Substance: PHENYTOIN
     Route: 065
  12. LACOSAMIDE [Suspect]
     Active Substance: LACOSAMIDE
     Indication: Generalised tonic-clonic seizure
     Route: 065
  13. LACOSAMIDE [Suspect]
     Active Substance: LACOSAMIDE
     Route: 065
  14. LACOSAMIDE [Suspect]
     Active Substance: LACOSAMIDE
     Route: 065
  15. PHENOBARBITAL [Suspect]
     Active Substance: PHENOBARBITAL
     Indication: Generalised tonic-clonic seizure
     Dosage: 1 MG/KG/PER HOUR
     Route: 065
  16. TOPIRAMATE [Suspect]
     Active Substance: TOPIRAMATE
     Indication: Generalised tonic-clonic seizure
     Route: 065
  17. ZONISAMIDE [Suspect]
     Active Substance: ZONISAMIDE
     Indication: Generalised tonic-clonic seizure
     Route: 065
  18. ZONISAMIDE [Suspect]
     Active Substance: ZONISAMIDE
     Route: 065
  19. PERAMPANEL [Suspect]
     Active Substance: PERAMPANEL
     Indication: Generalised tonic-clonic seizure
     Dosage: PER DAY
     Route: 065
  20. Intravenous  immunoglobulin [Concomitant]
     Indication: Generalised tonic-clonic seizure
     Route: 065
  21. RITUXIMAB [Concomitant]
     Active Substance: RITUXIMAB
     Indication: Generalised tonic-clonic seizure
     Dosage: PER DAY
     Route: 065
  22. CYCLOPHOSPHAMIDE [Concomitant]
     Active Substance: CYCLOPHOSPHAMIDE
     Indication: Generalised tonic-clonic seizure
     Route: 065
  23. CYCLOPHOSPHAMIDE [Concomitant]
     Active Substance: CYCLOPHOSPHAMIDE
     Route: 065
  24. ISOFLURANE [Concomitant]
     Active Substance: ISOFLURANE
     Indication: Generalised tonic-clonic seizure
     Route: 065

REACTIONS (2)
  - Drug ineffective [Unknown]
  - Drug resistance [Unknown]
